FAERS Safety Report 14446723 (Version 1)
Quarter: 2018Q1

REPORT INFORMATION
  Report Type: Report from Study
  Country: AU (occurrence: AU)
  Receive Date: 20180126
  Receipt Date: 20180126
  Transmission Date: 20180509
  Serious: Yes (Other)
  Sender: FDA-Public Use
  Company Number: PHHY2018AU009439

PATIENT
  Sex: Female

DRUGS (1)
  1. ELTROMBOPAG [Suspect]
     Active Substance: ELTROMBOPAG
     Indication: IMMUNE THROMBOCYTOPENIC PURPURA
     Dosage: 25 MG, MON, WED, FRI
     Route: 065
     Dates: start: 20150327

REACTIONS (3)
  - Goitre [Unknown]
  - Hypertension [Unknown]
  - Pulmonary embolism [Unknown]
